FAERS Safety Report 16597257 (Version 1)
Quarter: 2019Q3

REPORT INFORMATION
  Report Type: Spontaneous
  Country: CN (occurrence: CN)
  Receive Date: 20190719
  Receipt Date: 20190719
  Transmission Date: 20191004
  Serious: Yes (Hospitalization)
  Sender: FDA-Public Use
  Company Number: CN-PFIZER INC-2019307329

PATIENT
  Age: 65 Year
  Sex: Female
  Weight: 64 kg

DRUGS (1)
  1. LYRICA [Suspect]
     Active Substance: PREGABALIN
     Indication: PAIN
     Dosage: 1 DF, 2X/DAY
     Route: 048
     Dates: start: 20190708, end: 20190709

REACTIONS (8)
  - Nausea [Recovering/Resolving]
  - Visual impairment [Unknown]
  - Vomiting [Recovering/Resolving]
  - Chest discomfort [Unknown]
  - Fatigue [Unknown]
  - Hypoaesthesia [Unknown]
  - Dizziness [Recovering/Resolving]
  - Limb discomfort [Unknown]

NARRATIVE: CASE EVENT DATE: 20190708
